FAERS Safety Report 13678065 (Version 1)
Quarter: 2017Q2

REPORT INFORMATION
  Report Type: Spontaneous
  Country: US (occurrence: US)
  Receive Date: 20170622
  Receipt Date: 20170622
  Transmission Date: 20170830
  Serious: Yes (Other)
  Sender: FDA-Public Use
  Company Number: US-BRISTOL-MYERS SQUIBB COMPANY-BMS-2017-053341

PATIENT
  Sex: Female

DRUGS (1)
  1. KENALOG-10 [Suspect]
     Active Substance: TRIAMCINOLONE ACETONIDE
     Indication: PRODUCT USED FOR UNKNOWN INDICATION
     Route: 030

REACTIONS (6)
  - Eye disorder [Unknown]
  - Chest discomfort [Unknown]
  - Impaired gastric emptying [Unknown]
  - Pruritus [Unknown]
  - Fatigue [Unknown]
  - Urinary tract infection [Unknown]
